FAERS Safety Report 19818178 (Version 1)
Quarter: 2021Q3

REPORT INFORMATION
  Report Type: Spontaneous
  Country: CA (occurrence: CA)
  Receive Date: 20210911
  Receipt Date: 20210911
  Transmission Date: 20211014
  Serious: Yes (Hospitalization, Disabling)
  Sender: FDA-Public Use
  Company Number: CA-TEVA-2021-CA-1950585

PATIENT
  Age: 18 Year
  Sex: Male
  Weight: 78 kg

DRUGS (73)
  1. ALTEPLASE. [Concomitant]
     Active Substance: ALTEPLASE
  2. CALCIUM [Concomitant]
     Active Substance: CALCIUM
  3. DOCUSATE SODIUM. [Concomitant]
     Active Substance: DOCUSATE SODIUM
  4. FUROSEMIDE. [Concomitant]
     Active Substance: FUROSEMIDE
  5. MESNA. [Concomitant]
     Active Substance: MESNA
  6. PIPERACILLIN AND TAZOBACTAM [Concomitant]
     Active Substance: PIPERACILLIN SODIUM\TAZOBACTAM SODIUM
  7. POLYETHYLENE GLYCOL [Concomitant]
     Active Substance: POLYETHYLENE GLYCOLS
  8. VENLAFAXINE HYDROCHLORIDE. [Concomitant]
     Active Substance: VENLAFAXINE HYDROCHLORIDE
  9. BUPIVACAINE. [Concomitant]
     Active Substance: BUPIVACAINE
  10. CEFAZOLIN [Concomitant]
     Active Substance: CEFAZOLIN
  11. FOSCARNET SODIUM. [Concomitant]
     Active Substance: FOSCARNET SODIUM
     Route: 042
  12. HYDROCORTISONE. [Concomitant]
     Active Substance: HYDROCORTISONE
  13. MORPHINE [Concomitant]
     Active Substance: MORPHINE
  14. VALACYCLOVIR [Concomitant]
     Active Substance: VALACYCLOVIR HYDROCHLORIDE
  15. CYCLOPHOSPHAMIDE. [Suspect]
     Active Substance: CYCLOPHOSPHAMIDE
     Indication: TRANSPLANT
     Route: 042
  16. CYCLOPHOSPHAMIDE. [Suspect]
     Active Substance: CYCLOPHOSPHAMIDE
     Indication: LYMPHOMA
     Route: 042
  17. CLONIDINE. [Concomitant]
     Active Substance: CLONIDINE
  18. FILGRASTIM [Concomitant]
     Active Substance: FILGRASTIM
  19. MAGNESIUM [Concomitant]
     Active Substance: MAGNESIUM
  20. METHYLPREDNISOLONE NOS [Concomitant]
     Active Substance: METHYLPREDNISOLONE
  21. RANITIDINE. [Concomitant]
     Active Substance: RANITIDINE
  22. RISPERIDONE. [Concomitant]
     Active Substance: RISPERIDONE
  23. SODIUM PHOSPHATE [Concomitant]
     Active Substance: SODIUM PHOSPHATE
  24. FLUDARABINE [Suspect]
     Active Substance: FLUDARABINE PHOSPHATE
     Indication: TRANSPLANT
     Route: 042
  25. IFOSFAMIDE FOR INJECTION USP [Suspect]
     Active Substance: IFOSFAMIDE
     Indication: LYMPHOMA
     Route: 041
  26. AMOXICILLIN. [Concomitant]
     Active Substance: AMOXICILLIN
  27. CASPOFUNGIN [Concomitant]
     Active Substance: CASPOFUNGIN
  28. CETIRIZINE [Concomitant]
     Active Substance: CETIRIZINE HYDROCHLORIDE
  29. CIPROFLOXACIN. [Concomitant]
     Active Substance: CIPROFLOXACIN
  30. DIPHENHYDRAMINE. [Concomitant]
     Active Substance: DIPHENHYDRAMINE
  31. NICOTINE. [Concomitant]
     Active Substance: NICOTINE
  32. PIMOZIDE. [Concomitant]
     Active Substance: PIMOZIDE
  33. PREDNISONE. [Concomitant]
     Active Substance: PREDNISONE
  34. VALGANCICLOVIR. [Concomitant]
     Active Substance: VALGANCICLOVIR
  35. ETOPOSIDE. [Suspect]
     Active Substance: ETOPOSIDE
     Indication: LYMPHOMA
     Route: 041
  36. ETOPOSIDE. [Suspect]
     Active Substance: ETOPOSIDE
     Route: 041
  37. VINCRISTINE SULFATE. [Suspect]
     Active Substance: VINCRISTINE SULFATE
     Indication: LYMPHOMA
     Route: 041
  38. ALLOPURINOL. [Concomitant]
     Active Substance: ALLOPURINOL
  39. AMLODIPINE [Concomitant]
     Active Substance: AMLODIPINE BESYLATE
  40. CAFFEINE. [Concomitant]
     Active Substance: CAFFEINE
  41. CEFTRIAXONE FOR INJECTION USP [Concomitant]
     Active Substance: CEFTRIAXONE
  42. FENTANYL. [Concomitant]
     Active Substance: FENTANYL
  43. GANCICLOVIR. [Concomitant]
     Active Substance: GANCICLOVIR
  44. MELATONIN [Concomitant]
     Active Substance: MELATONIN
  45. PANTOPRAZOLE [Concomitant]
     Active Substance: PANTOPRAZOLE
  46. TRANEXAMIC ACID. [Concomitant]
     Active Substance: TRANEXAMIC ACID
  47. TRIMETHOPRIM?SULFAMETHOXAZOLE [Concomitant]
     Active Substance: SULFAMETHOXAZOLE\TRIMETHOPRIM
  48. AMITRIPTYLINE [Concomitant]
     Active Substance: AMITRIPTYLINE
  49. AMPHOTERICIN B. [Concomitant]
     Active Substance: AMPHOTERICIN B
  50. LORAZEPAM. [Concomitant]
     Active Substance: LORAZEPAM
  51. METHADONE [Concomitant]
     Active Substance: METHADONE HYDROCHLORIDE
  52. RABBIT ANTI THYMOCYTEGLOBULIN [Concomitant]
  53. DOXORUBICIN HYDROCHLORIDE INJECTION [Suspect]
     Active Substance: DOXORUBICIN HYDROCHLORIDE
     Indication: LYMPHOMA
     Route: 041
  54. CYTARABINE INJECTION [Suspect]
     Active Substance: CYTARABINE
     Indication: LYMPHOMA
     Dosage: 8000 MILLIGRAM DAILY;
     Route: 042
  55. RUXOLITINIB [Concomitant]
     Active Substance: RUXOLITINIB
  56. ACETAMINOPHEN. [Concomitant]
     Active Substance: ACETAMINOPHEN
  57. DEXAMETHASONE. [Concomitant]
     Active Substance: DEXAMETHASONE
  58. DIAZEPAM. [Concomitant]
     Active Substance: DIAZEPAM
  59. EPINEPHRINE. [Concomitant]
     Active Substance: EPINEPHRINE
  60. ESOMEPRAZOLE. [Concomitant]
     Active Substance: ESOMEPRAZOLE MAGNESIUM
  61. HYDROMORPHONE [Concomitant]
     Active Substance: HYDROMORPHONE
  62. MEROPENEM. [Concomitant]
     Active Substance: MEROPENEM
  63. ONDANSETRON [Concomitant]
     Active Substance: ONDANSETRON
  64. TACROLIMUS. [Concomitant]
     Active Substance: TACROLIMUS
  65. URSODEOXYCHOLIC ACID [Concomitant]
     Active Substance: URSODIOL
  66. VANCOMYCIN [Concomitant]
     Active Substance: VANCOMYCIN
  67. METHOTREXATE. [Suspect]
     Active Substance: METHOTREXATE
     Indication: PROPHYLAXIS AGAINST GRAFT VERSUS HOST DISEASE
     Route: 042
  68. CHOLECALCIFEROL [Concomitant]
     Active Substance: CHOLECALCIFEROL
  69. INSULIN [Concomitant]
     Active Substance: INSULIN NOS
  70. METOCLOPRAMIDE. [Concomitant]
     Active Substance: METOCLOPRAMIDE
  71. MYCAMINE [Concomitant]
     Active Substance: MICAFUNGIN SODIUM
  72. POTASSIUM [Concomitant]
     Active Substance: POTASSIUM
  73. SODIUM [Concomitant]
     Active Substance: SODIUM

REACTIONS (2)
  - Hypogonadism [Recovered/Resolved]
  - Fatigue [Recovered/Resolved]
